FAERS Safety Report 6388738-0 (Version None)
Quarter: 2009Q4

REPORT INFORMATION
  Report Type: 
  Country: None (occurrence: None)
  Receive Date: 20091001
  Receipt Date: 20090928
  Transmission Date: 20100525
  Serious: Yes (Hospitalization)
  Sender: FDA-Public Use
  Company Number: 2009SP015442

PATIENT
  Age: 67 Year
  Sex: Male
  Weight: 86.2 kg

DRUGS (12)
  1. TEMODAL [Suspect]
     Indication: MYELODYSPLASTIC SYNDROME
     Dosage: 400 MG; QD; PO
     Route: 048
     Dates: start: 20090609, end: 20090814
  2. MONOCOR [Concomitant]
  3. LIPITOR [Concomitant]
  4. NEURONTIN [Concomitant]
  5. LASIX [Concomitant]
  6. PANTOPRAZOLE [Concomitant]
  7. PROSCAR [Concomitant]
  8. FLOMAX [Concomitant]
  9. TYLENOL (CAPLET) [Concomitant]
  10. CLAVULIN /01000301/ [Concomitant]
  11. FLAGYL [Concomitant]
  12. DIFLUCAN [Concomitant]

REACTIONS (2)
  - CELLULITIS [None]
  - PYOMYOSITIS [None]
